FAERS Safety Report 7291269-7 (Version None)
Quarter: 2011Q1

REPORT INFORMATION
  Report Type: 
  Country: None (occurrence: None)
  Receive Date: 20110214
  Receipt Date: 20110209
  Transmission Date: 20110831
  Serious: Yes (Life-Threatening)
  Sender: FDA-Public Use
  Company Number: US-ASTRAZENECA-2011SE07510

PATIENT
  Age: 52 Year
  Sex: Female

DRUGS (12)
  1. LIDOCAINE [Suspect]
     Dosage: ON THE SECOND OPERATION
     Route: 058
  2. DAPSONE [Suspect]
     Indication: LEPROSY
  3. CETACAINE [Concomitant]
  4. MIDAZOLAM [Concomitant]
     Route: 042
  5. LIDOCAINE [Suspect]
     Indication: ANAESTHESIA
     Route: 049
  6. LIDOCAINE [Suspect]
     Route: 049
  7. LIDOCAINE [Suspect]
     Indication: LOCAL ANAESTHESIA
     Route: 042
  8. ROCURONIUM BROMIDE [Concomitant]
     Route: 042
  9. PROPOFOL [Concomitant]
     Route: 042
  10. ISOFLURANE [Concomitant]
     Route: 055
  11. FENTANYL [Concomitant]
     Route: 042
  12. FENTANYL [Concomitant]
     Route: 042

REACTIONS (2)
  - RESPIRATORY ARREST [None]
  - METHAEMOGLOBINAEMIA [None]
